FAERS Safety Report 6061817-3 (Version None)
Quarter: 2009Q1

REPORT INFORMATION
  Report Type: 
  Country: None (occurrence: None)
  Receive Date: 20090202
  Receipt Date: 20090122
  Transmission Date: 20090719
  Serious: Yes (Hospitalization, Other)
  Sender: FDA-Public Use
  Company Number: US-ELI_LILLY_AND_COMPANY-US200901003780

PATIENT
  Sex: Male
  Weight: 122.45 kg

DRUGS (7)
  1. BYETTA [Suspect]
     Indication: TYPE 2 DIABETES MELLITUS
     Dosage: 10 UG, 2/D
     Route: 058
     Dates: start: 20070101
  2. ACTOS [Concomitant]
     Indication: TYPE 2 DIABETES MELLITUS
     Dosage: 45 MG, DAILY (1/D)
  3. GLIMEPIRIDE [Concomitant]
     Indication: TYPE 2 DIABETES MELLITUS
     Dosage: 4 MG, DAILY (1/D)
  4. AVODART [Concomitant]
     Dosage: 0.5 MG, DAILY (1/D)
  5. BENICAR [Concomitant]
     Indication: HYPERTENSION
     Dosage: UNK, DAILY (1/D)
  6. LIPITOR [Concomitant]
     Indication: BLOOD CHOLESTEROL INCREASED
     Dosage: 40 MG, DAILY (1/D)
  7. ASPIRIN                                 /SCH/ [Concomitant]
     Dosage: 81 MG, QOD

REACTIONS (7)
  - DIZZINESS [None]
  - DYSPNOEA [None]
  - GASTRIC DISORDER [None]
  - HAEMATOCHEZIA [None]
  - HEART RATE INCREASED [None]
  - MALAISE [None]
  - ULCER HAEMORRHAGE [None]
